FAERS Safety Report 7957563-9 (Version None)
Quarter: 2011Q4

REPORT INFORMATION
  Report Type: 
  Country: None (occurrence: None)
  Receive Date: 20111205
  Receipt Date: 20111128
  Transmission Date: 20120403
  Serious: Yes (Death)
  Sender: FDA-Public Use
  Company Number: GB-GLAXOSMITHKLINE-B0764105A

PATIENT
  Age: 18 Year
  Sex: Female
  Weight: 69 kg

DRUGS (8)
  1. METHOTREXATE [Concomitant]
     Dates: start: 20101201
  2. PREGABALIN [Concomitant]
  3. MORPHINE [Concomitant]
  4. OMEPRAZOLE [Concomitant]
  5. NAPROXEN [Concomitant]
  6. METHYLPREDNISOLONE [Concomitant]
     Indication: ARTHRITIS
     Route: 042
  7. LAMOTRIGINE [Suspect]
     Indication: MIGRAINE
     Dosage: 25MG TWICE PER DAY
     Route: 048
     Dates: start: 20101223
  8. ACETAMINOPHEN [Concomitant]

REACTIONS (8)
  - ARTHRALGIA [None]
  - PYREXIA [None]
  - DRUG RASH WITH EOSINOPHILIA AND SYSTEMIC SYMPTOMS [None]
  - MULTI-ORGAN FAILURE [None]
  - BRAIN OEDEMA [None]
  - DISSEMINATED INTRAVASCULAR COAGULATION [None]
  - RASH [None]
  - BALANCE DISORDER [None]
